FAERS Safety Report 15755299 (Version 2)
Quarter: 2018Q4

REPORT INFORMATION
  Report Type: Spontaneous
  Country: SI (occurrence: SI)
  Receive Date: 20181224
  Receipt Date: 20181227
  Transmission Date: 20190205
  Serious: Yes (Hospitalization)
  Sender: FDA-Public Use
  Company Number: SI-B.I. PHARMACEUTICALS,INC./RIDGEFIELD-2018-BI-060558

PATIENT
  Age: 82 Year
  Sex: Female

DRUGS (3)
  1. PRADAXA [Suspect]
     Active Substance: DABIGATRAN ETEXILATE MESYLATE
     Indication: ATRIAL FIBRILLATION
     Route: 065
  2. INSULIN [Concomitant]
     Active Substance: INSULIN NOS
     Indication: TYPE 2 DIABETES MELLITUS
     Route: 065
  3. MEMANTINE. [Concomitant]
     Active Substance: MEMANTINE
     Indication: COGNITIVE DISORDER
     Route: 065

REACTIONS (5)
  - Renal impairment [Recovering/Resolving]
  - Hyponatraemia [Unknown]
  - Confusional state [Unknown]
  - Normocytic anaemia [Unknown]
  - Gastrointestinal haemorrhage [Unknown]
